FAERS Safety Report 7524518-8 (Version None)
Quarter: 2011Q2

REPORT INFORMATION
  Report Type: 
  Country: None (occurrence: None)
  Receive Date: 20110606
  Receipt Date: 20110128
  Transmission Date: 20111010
  Serious: Yes (Hospitalization)
  Sender: FDA-Public Use
  Company Number: US-BAYER-201040690NA

PATIENT
  Age: 27 Year
  Sex: Female
  Weight: 72.562 kg

DRUGS (4)
  1. YAZ [Suspect]
     Indication: ACNE
  2. YASMIN [Suspect]
     Indication: ACNE
  3. DROSPIRENONE AND ETHINYL ESTRADIOL [Suspect]
     Indication: ACNE
  4. YASMIN [Suspect]
     Indication: PREMENSTRUAL SYNDROME

REACTIONS (2)
  - PULMONARY EMBOLISM [None]
  - PAIN [None]
